FAERS Safety Report 15085288 (Version 10)
Quarter: 2025Q3

REPORT INFORMATION
  Report Type: Report from Study
  Country: US (occurrence: US)
  Receive Date: 20180628
  Receipt Date: 20250925
  Transmission Date: 20251021
  Serious: Yes (Other)
  Sender: TAKEDA
  Company Number: US-SHIRE-US201822207

PATIENT
  Age: 62 Year
  Sex: Female

DRUGS (6)
  1. PARATHYROID HORMONE [Suspect]
     Active Substance: PARATHYROID HORMONE
     Indication: Hypoparathyroidism
  2. PARATHYROID HORMONE [Suspect]
     Active Substance: PARATHYROID HORMONE
     Indication: Adjuvant therapy
     Dosage: 50 MICROGRAM, BID
     Dates: start: 20160711
  3. PARATHYROID HORMONE [Suspect]
     Active Substance: PARATHYROID HORMONE
     Dosage: 100 MICROGRAM, QD
     Dates: start: 20170510
  4. PARATHYROID HORMONE [Suspect]
     Active Substance: PARATHYROID HORMONE
     Dosage: 50 MICROGRAM, BID
  5. PARATHYROID HORMONE [Suspect]
     Active Substance: PARATHYROID HORMONE
  6. PARATHYROID HORMONE [Suspect]
     Active Substance: PARATHYROID HORMONE
     Dosage: 50 MICROGRAM, BID

REACTIONS (15)
  - Nephrolithiasis [Unknown]
  - Pancreatic carcinoma [Recovered/Resolved]
  - Diabetic coma [Recovered/Resolved]
  - Pneumonia viral [Recovered/Resolved]
  - Cataract [Recovering/Resolving]
  - Osteomyelitis [Recovered/Resolved]
  - Respiratory failure [Recovered/Resolved]
  - Hypocalcaemia [Recovered/Resolved]
  - Aneurysm [Unknown]
  - Cardiac disorder [Recovered/Resolved]
  - Arthritis [Recovered/Resolved]
  - Malaise [Not Recovered/Not Resolved]
  - Product use issue [Unknown]
  - General physical condition [Unknown]
  - Hypomagnesaemia [Unknown]

NARRATIVE: CASE EVENT DATE: 20180601
